FAERS Safety Report 6812600-X (Version None)
Quarter: 2010Q3

REPORT INFORMATION
  Report Type: 
  Country: None (occurrence: None)
  Receive Date: 20100701
  Receipt Date: 20100621
  Transmission Date: 20110219
  Serious: Yes (Death, Hospitalization)
  Sender: FDA-Public Use
  Company Number: JP-PFIZER INC-2010059502

PATIENT
  Age: 56 Year
  Sex: Female
  Weight: 67 kg

DRUGS (13)
  1. SUNITINIB MALATE [Suspect]
     Indication: RENAL CELL CARCINOMA
     Dosage: 50 MG, 1X/DAY
     Route: 048
     Dates: start: 20091023
  2. OXYCONTIN [Concomitant]
     Dosage: UNK
     Route: 048
  3. KALIMATE [Concomitant]
     Route: 048
     Dates: start: 20091102
  4. NOVAMIN [Concomitant]
     Route: 048
     Dates: end: 20091029
  5. MAGNESIUM OXIDE [Concomitant]
     Dosage: UNK
     Route: 048
  6. MICONAZOLE NITRATE [Concomitant]
     Route: 048
     Dates: end: 20091025
  7. HACHIAZULE [Concomitant]
     Dosage: UNK
     Route: 048
     Dates: start: 20091105
  8. PASTARON [Concomitant]
     Dosage: UNK
     Route: 062
     Dates: start: 20091027
  9. THYRADIN [Concomitant]
     Dosage: UNK
     Route: 048
     Dates: start: 20091106
  10. DIOVANE [Concomitant]
     Dosage: UNK
     Route: 048
     Dates: start: 20091106
  11. ANTEBATE [Concomitant]
     Dosage: UNK
     Route: 062
     Dates: start: 20091111
  12. ALBUMIN BOVINE [Concomitant]
     Route: 042
     Dates: start: 20091110, end: 20091112
  13. HEPARIN SODIUM [Concomitant]
     Route: 042
     Dates: start: 20091110, end: 20091111

REACTIONS (3)
  - DEATH [None]
  - PLEURAL EFFUSION [None]
  - RENAL FAILURE ACUTE [None]
